FAERS Safety Report 15104184 (Version 1)
Quarter: 2018Q3

REPORT INFORMATION
  Report Type: Spontaneous
  Country: US (occurrence: US)
  Receive Date: 20180703
  Receipt Date: 20180703
  Transmission Date: 20181010
  Serious: Yes (Other)
  Sender: FDA-Public Use
  Company Number: US-MYLANLABS-2018M1046627

PATIENT
  Age: 52 Year
  Sex: Female

DRUGS (1)
  1. PREDNISONE. [Suspect]
     Active Substance: PREDNISONE
     Indication: PRODUCT USED FOR UNKNOWN INDICATION
     Dosage: 10 MG, UNK
     Route: 048

REACTIONS (10)
  - Cataract [Unknown]
  - Otorrhoea [Unknown]
  - Neuropathy peripheral [Unknown]
  - Visual impairment [Unknown]
  - Nerve injury [Unknown]
  - Anger [Not Recovered/Not Resolved]
  - Ear pruritus [Unknown]
  - Diabetes mellitus [Unknown]
  - Skin disorder [Unknown]
  - Mood swings [Not Recovered/Not Resolved]
